FAERS Safety Report 6425380-7 (Version None)
Quarter: 2009Q4

REPORT INFORMATION
  Report Type: 
  Country: None (occurrence: None)
  Receive Date: 20091103
  Receipt Date: 20091027
  Transmission Date: 20100525
  Serious: Yes (Death, Hospitalization)
  Sender: FDA-Public Use
  Company Number: B0600925A

PATIENT
  Sex: Female

DRUGS (7)
  1. ZYLORIC [Suspect]
     Indication: BLOOD URIC ACID INCREASED
     Dosage: 300MG PER DAY
     Route: 048
     Dates: start: 20090814, end: 20091015
  2. ZOVIRAX [Suspect]
     Indication: DRUG USE FOR UNKNOWN INDICATION
     Dosage: 200MG TWICE PER DAY
     Route: 048
     Dates: start: 20090814, end: 20090915
  3. VELCADE [Suspect]
     Indication: MULTIPLE MYELOMA
     Dosage: 3.5MG PER DAY
     Route: 042
     Dates: start: 20090624, end: 20090916
  4. BACTRIM [Suspect]
     Indication: DRUG USE FOR UNKNOWN INDICATION
     Dosage: 640MG PER DAY
     Route: 048
     Dates: start: 20090814, end: 20090815
  5. NEXIUM [Concomitant]
     Dosage: 40MG PER DAY
     Route: 048
     Dates: start: 20090814, end: 20091015
  6. SOLDESAM [Concomitant]
     Dosage: 30DROP PER DAY
     Route: 048
     Dates: start: 20090917, end: 20091014
  7. POLASE [Concomitant]
     Dosage: 1SAC PER DAY
     Route: 048
     Dates: start: 20090814, end: 20090915

REACTIONS (2)
  - MULTI-ORGAN FAILURE [None]
  - TOXIC EPIDERMAL NECROLYSIS [None]
